FAERS Safety Report 9163738 (Version 3)
Quarter: 2013Q2

REPORT INFORMATION
  Report Type: Spontaneous
  Country: BR (occurrence: BR)
  Receive Date: 20130314
  Receipt Date: 20130627
  Transmission Date: 20140414
  Serious: Yes (Hospitalization)
  Sender: FDA-Public Use
  Company Number: BR-ASTRAZENECA-2013SE15315

PATIENT
  Age: 64 Year
  Sex: Female
  Weight: 48 kg

DRUGS (1)
  1. SYMBICORT TURBUHALER [Suspect]
     Indication: LUNG DISORDER
     Dosage: 160/4.5 MCG, FOUR TIMES A DAY
     Route: 055
     Dates: start: 201301

REACTIONS (1)
  - Dyspnoea [Recovered/Resolved]
